FAERS Safety Report 16565625 (Version 1)
Quarter: 2019Q3

REPORT INFORMATION
  Report Type: Spontaneous
  Country: DE (occurrence: DE)
  Receive Date: 20190712
  Receipt Date: 20190712
  Transmission Date: 20191004
  Serious: Yes (Hospitalization)
  Sender: FDA-Public Use
  Company Number: DE-TEVA-2019-DE-1075164

PATIENT
  Age: 80 Year
  Sex: Female
  Weight: 61.1 kg

DRUGS (13)
  1. PALLADON RETARD 4MG [Concomitant]
     Dosage: 4 MG, 1-0-0-0, RETARD-KAPSELN
     Route: 048
  2. LEVOFLOXACIN. [Concomitant]
     Active Substance: LEVOFLOXACIN
     Dosage: 500 MG, 1-0-0-0, TABLETTEN
     Route: 048
  3. ONDANSETRON [Concomitant]
     Active Substance: ONDANSETRON
     Dosage: 8 MG, 1-0-1-0, TABLETS
     Route: 048
  4. EUGALAC [Concomitant]
     Dosage: 1 MEASURING CUP, 1-0-0-0, SYRUP
     Route: 048
  5. PACLITAXEL. [Suspect]
     Active Substance: PACLITAXEL
     Dosage: SCHEME, SOLUTION FOR INJECTION/INFUSION
     Route: 042
  6. GEMCITABINE. [Suspect]
     Active Substance: GEMCITABINE
     Dosage: SCHEME, SOLUTION FOR INJECTION/INFUSION
     Route: 042
  7. ESCITALOPRAM [Concomitant]
     Active Substance: ESCITALOPRAM OXALATE
  8. PANTOPRAZOL [Concomitant]
     Active Substance: PANTOPRAZOLE SODIUM
     Dosage: 40 MG, 1-0-0-0, TABLETTEN
     Route: 048
  9. TORASEMID [Concomitant]
     Active Substance: TORSEMIDE
     Dosage: 5 MG, 1-0-0-0, TABLETTEN
     Route: 048
  10. PALLADON [Concomitant]
     Active Substance: HYDROMORPHONE
     Dosage: 1.3 MG, NEED, CAPSULES
     Route: 048
  11. L-THYROXIN [Concomitant]
     Active Substance: LEVOTHYROXINE SODIUM
     Dosage: 125 ?G, 125, TABLETTEN
     Route: 048
  12. CLEXANE [Concomitant]
     Active Substance: ENOXAPARIN SODIUM
     Dosage: 0.4 ML, 0-0-1-0, SOLUTION FOR INJECTION/INFUSION
     Route: 058
  13. NOVALGIN [Concomitant]
     Dosage: 40 GTT, 1-1-1-1, DROPS
     Route: 048

REACTIONS (4)
  - Vomiting [Unknown]
  - Fatigue [Unknown]
  - General physical health deterioration [Unknown]
  - Nausea [Unknown]
